FAERS Safety Report 5749641-X (Version None)
Quarter: 2008Q2

REPORT INFORMATION
  Report Type: 
  Country: None (occurrence: None)
  Receive Date: 20080527
  Receipt Date: 20080515
  Transmission Date: 20081010
  Serious: Yes (Other)
  Sender: FDA-Public Use
  Company Number: US-MERCK-0805USA03724

PATIENT
  Age: 35 Year
  Sex: Male
  Weight: 123 kg

DRUGS (8)
  1. PROSCAR [Suspect]
     Route: 048
  2. CONCERTA [Suspect]
     Route: 048
  3. PROVIGIL [Suspect]
     Route: 048
  4. PAXIL [Suspect]
     Indication: DEPRESSION
     Route: 048
  5. RITALIN [Suspect]
     Route: 065
  6. DOXEPIN HYDROCHLORIDE [Suspect]
     Route: 048
  7. TESTOSTERONE [Suspect]
     Route: 065
  8. [THERAPY UNSPECIFIED] [Suspect]
     Route: 065

REACTIONS (6)
  - ADVERSE REACTION [None]
  - AGGRESSION [None]
  - CHILD ABUSE [None]
  - HOMICIDE [None]
  - LOSS OF CONSCIOUSNESS [None]
  - TREMOR [None]
